FAERS Safety Report 4392479-9 (Version None)
Quarter: 2004Q3

REPORT INFORMATION
  Report Type: 
  Country: None (occurrence: None)
  Receive Date: 20040702
  Receipt Date: 20040620
  Transmission Date: 20050211
  Serious: Yes (Death)
  Sender: FDA-Public Use
  Company Number: US-JNJFOC-20040607225

PATIENT
  Age: 34 Year
  Sex: Male

DRUGS (3)
  1. EXTRA STRENGTH TYLENOL [Suspect]
     Indication: HEADACHE
     Dosage: 1000 MG, ORAL
     Route: 048
     Dates: start: 20040607
  2. STEROIDS (CORTICOSTEROID NOS) [Suspect]
     Dosage: INJECTION
  3. ^GOODY POWDERS^ (ALL OTHER THERAPEUTIC PRODUCTS) [Concomitant]

REACTIONS (5)
  - AORTIC RUPTURE [None]
  - CONVULSION [None]
  - DRUG EFFECT DECREASED [None]
  - ERYTHEMA [None]
  - FALL [None]
